FAERS Safety Report 8548500-7 (Version None)
Quarter: 2012Q3

REPORT INFORMATION
  Report Type: 
  Country: None (occurrence: None)
  Receive Date: 20120730
  Receipt Date: 20120719
  Transmission Date: 20120928
  Serious: Yes (Other)
  Sender: FDA-Public Use
  Company Number: CL-009507513-2011SP045695

PATIENT

DRUGS (1)
  1. IMPLANON [Suspect]
     Indication: CONTRACEPTION
     Dosage: 68 MG, UNK
     Route: 059
     Dates: start: 20110208

REACTIONS (8)
  - COLITIS ULCERATIVE [None]
  - HYPOTHYROIDISM [None]
  - METRORRHAGIA [None]
  - PREGNANCY WITH IMPLANT CONTRACEPTIVE [None]
  - MICTURITION URGENCY [None]
  - WEIGHT INCREASED [None]
  - ABORTION MISSED [None]
  - ABORTION THREATENED [None]
